FAERS Safety Report 5325497-4 (Version None)
Quarter: 2007Q2

REPORT INFORMATION
  Report Type: 
  Country: None (occurrence: None)
  Receive Date: 20070515
  Receipt Date: 20070503
  Transmission Date: 20071010
  Serious: Yes (Other)
  Sender: FDA-Public Use
  Company Number: NO-PFIZER INC-2007024260

PATIENT
  Age: 84 Year
  Sex: Female

DRUGS (9)
  1. LYRICA [Suspect]
     Indication: PHANTOM PAIN
     Route: 048
  2. ALBYL-E [Concomitant]
  3. VITAMINS [Concomitant]
  4. ZOPICLONE [Concomitant]
  5. CIPRALEX [Concomitant]
  6. CENTYL [Concomitant]
  7. NORVASC [Concomitant]
  8. PARACET [Concomitant]
  9. POTASSIUM CHLORIDE [Concomitant]

REACTIONS (6)
  - DISTURBANCE IN ATTENTION [None]
  - DYSKINESIA [None]
  - EXPRESSIVE LANGUAGE DISORDER [None]
  - HYPOAESTHESIA [None]
  - HYPOKINESIA [None]
  - WEIGHT INCREASED [None]
